FAERS Safety Report 18707561 (Version 1)
Quarter: 2021Q1

REPORT INFORMATION
  Report Type: Spontaneous
  Country: US (occurrence: US)
  Receive Date: 20210106
  Receipt Date: 20210106
  Transmission Date: 20210419
  Serious: Yes (Other)
  Sender: FDA-Public Use
  Company Number: US-AMGEN-USASP2020213169

PATIENT
  Age: 43 Year
  Sex: Male

DRUGS (1)
  1. CINACALCET HCL [Suspect]
     Active Substance: CINACALCET HYDROCHLORIDE
     Indication: HYPERPARATHYROIDISM TERTIARY
     Dosage: UNK
     Route: 065

REACTIONS (11)
  - Osteopenia [Unknown]
  - Foot fracture [Unknown]
  - Hyperparathyroidism tertiary [Not Recovered/Not Resolved]
  - Aortic arteriosclerosis [Unknown]
  - Arteriosclerosis [Unknown]
  - Arthropathy [Unknown]
  - Chronic kidney disease-mineral and bone disorder [Unknown]
  - Calcinosis [Unknown]
  - Fibula fracture [Unknown]
  - Joint dislocation [Unknown]
  - Tibia fracture [Unknown]
